FAERS Safety Report 9101378 (Version 1)
Quarter: 2013Q1

REPORT INFORMATION
  Report Type: Spontaneous
  Country: JP (occurrence: JP)
  Receive Date: 20130215
  Receipt Date: 20130215
  Transmission Date: 20140127
  Serious: Yes (Other)
  Sender: FDA-Public Use
  Company Number: JP-PFIZER INC-2013047410

PATIENT
  Age: 54 Year
  Sex: Male

DRUGS (1)
  1. ZITHROMAC [Suspect]
     Dosage: 500 MG/DAY
     Route: 048

REACTIONS (3)
  - Road traffic accident [Unknown]
  - Loss of consciousness [Unknown]
  - Medication error [Unknown]
